FAERS Safety Report 21449540 (Version 3)
Quarter: 2023Q2

REPORT INFORMATION
  Report Type: Report from Study
  Country: US (occurrence: US)
  Receive Date: 20221013
  Receipt Date: 20230407
  Transmission Date: 20230721
  Serious: No
  Sender: FDA-Public Use
  Company Number: US-ABBVIE-4152815

PATIENT
  Sex: Female

DRUGS (3)
  1. SKYRIZI [Suspect]
     Active Substance: RISANKIZUMAB-RZAA
     Indication: Psoriasis
     Dosage: WEEK 4?1 IN ONCE?FORM STRENGTH 150 MILLIGRAM
     Route: 058
     Dates: start: 202111
  2. SKYRIZI [Suspect]
     Active Substance: RISANKIZUMAB-RZAA
     Indication: Psoriasis
     Dosage: WEEK 0?1 IN ONCE?FORM STRENGTH 150 MILLIGRAM
     Route: 058
     Dates: start: 20211005, end: 20211005
  3. SKYRIZI [Suspect]
     Active Substance: RISANKIZUMAB-RZAA
     Indication: Psoriatic arthropathy

REACTIONS (5)
  - COVID-19 [Recovered/Resolved]
  - Psoriasis [Recovering/Resolving]
  - Sinusitis [Recovered/Resolved]
  - Unevaluable event [Unknown]
  - Ligament rupture [Not Recovered/Not Resolved]

NARRATIVE: CASE EVENT DATE: 20220101
